FAERS Safety Report 11075024 (Version 1)
Quarter: 2015Q2

REPORT INFORMATION
  Report Type: Spontaneous
  Country: BR (occurrence: BR)
  Receive Date: 20150429
  Receipt Date: 20150429
  Transmission Date: 20150821
  Serious: Yes (Other)
  Sender: FDA-Public Use
  Company Number: BR-JNJFOC-20150419927

PATIENT
  Sex: Female

DRUGS (1)
  1. REMICADE [Suspect]
     Active Substance: INFLIXIMAB
     Indication: RHEUMATOID ARTHRITIS
     Route: 042
     Dates: end: 201412

REACTIONS (6)
  - Bedridden [Unknown]
  - Erysipelas [Unknown]
  - Neoplasm [Unknown]
  - Inflammation [Unknown]
  - Pharyngeal oedema [Not Recovered/Not Resolved]
  - Pain [Not Recovered/Not Resolved]
